FAERS Safety Report 9513101 (Version 1)
Quarter: 2013Q1

REPORT INFORMATION
  Report Type: Spontaneous
  Country: US (occurrence: None)
  Receive Date: 20130305
  Receipt Date: 20130305
  Transmission Date: 20140127
  Serious: Yes (Other)
  Sender: FDA-Public Use
  Company Number: 163-21880-12053163

PATIENT
  Age: 72 Year
  Sex: Female

DRUGS (4)
  1. REVLIMID [Suspect]
     Indication: PLASMA CELL MYELOMA
     Dosage: 28 IN 28 D
     Route: 048
     Dates: start: 20110621
  2. PROCHLORPERAZINE [Concomitant]
  3. ALIGN [Concomitant]
  4. DEXILANT [Concomitant]

REACTIONS (12)
  - Gastric disorder [None]
  - Dysphonia [None]
  - Arthritis infective [None]
  - Abdominal discomfort [None]
  - Diarrhoea [None]
  - Nausea [None]
  - Contusion [None]
  - Pruritus [None]
  - Back pain [None]
  - Dry throat [None]
  - Urinary tract infection [None]
  - Paraesthesia [None]
